FAERS Safety Report 22391745 (Version 1)
Quarter: 2023Q2

REPORT INFORMATION
  Report Type: Report from Study
  Country: MX (occurrence: MX)
  Receive Date: 20230601
  Receipt Date: 20230601
  Transmission Date: 20230722
  Serious: Yes (Other)
  Sender: FDA-Public Use
  Company Number: MX-002147023-NVSC2023MX124086

PATIENT
  Sex: Male

DRUGS (3)
  1. GILENYA [Suspect]
     Active Substance: FINGOLIMOD HYDROCHLORIDE
     Indication: Multiple sclerosis
     Dosage: 0.5 MG, QOD, HE ALTERNATES THE INTAKES
     Route: 048
     Dates: start: 202209
  2. GILENYA [Suspect]
     Active Substance: FINGOLIMOD HYDROCHLORIDE
     Dosage: 0.5 MG, QOD, HE ALTERNATES THE INTAKES
     Route: 048
  3. TRIBEDOCE [Concomitant]
     Indication: Product used for unknown indication
     Dosage: UNK
     Route: 065

REACTIONS (7)
  - Spinal cord compression [Not Recovered/Not Resolved]
  - Accident [Unknown]
  - Pain [Unknown]
  - Full blood count decreased [Unknown]
  - Limb discomfort [Unknown]
  - Limb injury [Unknown]
  - Feeling abnormal [Unknown]
